FAERS Safety Report 9222085 (Version 1)
Quarter: 2013Q2

REPORT INFORMATION
  Report Type: Spontaneous
  Country: US (occurrence: None)
  Receive Date: 20130408
  Receipt Date: 20130408
  Transmission Date: 20140414
  Serious: Yes (Hospitalization, Other)
  Sender: FDA-Public Use
  Company Number: 147383

PATIENT
  Age: 24 Year
  Sex: Female
  Weight: 54 kg

DRUGS (2)
  1. DAUNORUBICIN HCL INJ. 20MG/4ML - BEDFORD LABS, INC. [Suspect]
     Indication: ACUTE MYELOID LEUKAEMIA
     Route: 042
     Dates: start: 20130119, end: 20130121
  2. CYTARABINE [Suspect]
     Indication: ACUTE MYELOID LEUKAEMIA
     Dates: start: 20130119, end: 20130125

REACTIONS (6)
  - Febrile neutropenia [None]
  - Haemoglobin decreased [None]
  - Oropharyngeal pain [None]
  - Pneumonia [None]
  - Anaemia [None]
  - Thrombocytopenia [None]
